FAERS Safety Report 17209268 (Version 1)
Quarter: 2019Q4

REPORT INFORMATION
  Report Type: Spontaneous
  Country: SE (occurrence: SE)
  Receive Date: 20191227
  Receipt Date: 20191227
  Transmission Date: 20200122
  Serious: Yes (Hospitalization)
  Sender: FDA-Public Use
  Company Number: SE-MYLANLABS-2019M1129609

PATIENT
  Age: 18 Year
  Sex: Female

DRUGS (2)
  1. LERGIGAN (PROMETHAZINE) [Suspect]
     Active Substance: PROMETHAZINE HYDROCHLORIDE
     Indication: PRODUCT USED FOR UNKNOWN INDICATION
     Dosage: 20-30 ST
     Route: 048
     Dates: start: 20181203, end: 20181203
  2. PROPAVAN [Suspect]
     Active Substance: PROPIOMAZINE
     Indication: PRODUCT USED FOR UNKNOWN INDICATION
     Dosage: 20-30 ST
     Route: 048
     Dates: start: 20181203, end: 20181203

REACTIONS (10)
  - Hypotension [Unknown]
  - Sinus tachycardia [Unknown]
  - Thirst [Unknown]
  - Suicide attempt [Unknown]
  - Intentional overdose [Unknown]
  - Compartment syndrome [Unknown]
  - Rhabdomyolysis [Unknown]
  - Depressed level of consciousness [Recovering/Resolving]
  - Peripheral coldness [Unknown]
  - Agitation [Unknown]

NARRATIVE: CASE EVENT DATE: 201812
